FAERS Safety Report 9479310 (Version 3)
Quarter: 2013Q4

REPORT INFORMATION
  Report Type: Report from Study
  Country: US (occurrence: US)
  Receive Date: 20130827
  Receipt Date: 20131011
  Transmission Date: 20140711
  Serious: Yes (Hospitalization)
  Sender: FDA-Public Use
  Company Number: US-PFIZER INC-2013209139

PATIENT
  Age: 67 Year
  Sex: Female
  Weight: 98.41 kg

DRUGS (18)
  1. BLINDED CELECOXIB [Suspect]
     Indication: OSTEOARTHRITIS
     Dosage: HIGH DOSE, 3X/DAY
     Route: 048
     Dates: start: 20120126, end: 20130627
  2. BLINDED IBUPROFEN [Suspect]
     Indication: OSTEOARTHRITIS
     Dosage: HIGH DOSE, 3X/DAY
     Route: 048
     Dates: start: 20120126, end: 20130627
  3. BLINDED IBUPROFEN [Suspect]
     Indication: OSTEOARTHRITIS
     Dosage: HIGH DOSE, 3X/DAY
     Route: 048
     Dates: start: 20120126, end: 20130627
  4. BLINDED IBUPROFEN [Suspect]
     Indication: OSTEOARTHRITIS
     Dosage: HIGH DOSE, 3X/DAY
     Route: 048
     Dates: start: 20120126, end: 20130627
  5. BLINDED NAPROXEN [Suspect]
     Indication: OSTEOARTHRITIS
     Dosage: HIGH DOSE, 3X/DAY
     Route: 048
     Dates: start: 20120126, end: 20130627
  6. BLINDED NAPROXEN [Suspect]
     Indication: OSTEOARTHRITIS
     Dosage: HIGH DOSE, 3X/DAY
     Route: 048
     Dates: start: 20120126, end: 20130627
  7. BLINDED NAPROXEN [Suspect]
     Indication: OSTEOARTHRITIS
     Dosage: HIGH DOSE, 3X/DAY
     Route: 048
     Dates: start: 20120126, end: 20130627
  8. BLINDED PLACEBO [Suspect]
     Indication: OSTEOARTHRITIS
     Dosage: HIGH DOSE, 3X/DAY
     Route: 048
     Dates: start: 20120126, end: 20130627
  9. BLINDED CELECOXIB [Suspect]
     Indication: RHEUMATOID ARTHRITIS
  10. BLINDED IBUPROFEN [Suspect]
     Indication: RHEUMATOID ARTHRITIS
  11. BLINDED IBUPROFEN [Suspect]
     Indication: RHEUMATOID ARTHRITIS
  12. BLINDED IBUPROFEN [Suspect]
     Indication: RHEUMATOID ARTHRITIS
  13. BLINDED NAPROXEN [Suspect]
     Indication: RHEUMATOID ARTHRITIS
  14. BLINDED NAPROXEN [Suspect]
     Indication: RHEUMATOID ARTHRITIS
  15. BLINDED NAPROXEN [Suspect]
     Indication: RHEUMATOID ARTHRITIS
  16. BLINDED PLACEBO [Suspect]
     Indication: RHEUMATOID ARTHRITIS
  17. DEPO-MEDROL [Suspect]
     Indication: MUSCULOSKELETAL PAIN
     Dosage: 120 MG, SINGLE
     Route: 014
     Dates: start: 20130621, end: 20130621
  18. NEXIUM [Concomitant]
     Indication: PROPHYLAXIS
     Dosage: 20 MG, QD
     Route: 048
     Dates: start: 20120126, end: 20130627

REACTIONS (1)
  - Osteomyelitis [Recovered/Resolved]
